FAERS Safety Report 20628566 (Version 2)
Quarter: 2023Q1

REPORT INFORMATION
  Report Type: Report from Study
  Country: CN (occurrence: CN)
  Receive Date: 20220323
  Receipt Date: 20230216
  Transmission Date: 20230418
  Serious: Yes (Other)
  Sender: FDA-Public Use
  Company Number: CN-CALLIDITAS THERAPEUTICS AB-2021CNNEFECON0063

PATIENT
  Age: 43 Year
  Sex: Female
  Weight: 65 kg

DRUGS (2)
  1. BUDESONIDE [Suspect]
     Active Substance: BUDESONIDE
     Indication: IgA nephropathy
     Dosage: 16 MG, QD
     Route: 048
     Dates: start: 20201210
  2. VALSARTAN [Concomitant]
     Active Substance: VALSARTAN
     Indication: IgA nephropathy
     Dosage: 80 MG, BID
     Route: 048
     Dates: start: 201906, end: 20210701

REACTIONS (1)
  - Hypertension [Recovered/Resolved]

NARRATIVE: CASE EVENT DATE: 20210623
